FAERS Safety Report 9321898 (Version 1)
Quarter: 2013Q2

REPORT INFORMATION
  Report Type: Spontaneous
  Country: US (occurrence: None)
  Receive Date: 20130530
  Receipt Date: 20130530
  Transmission Date: 20140414
  Serious: Yes (Death, Life-Threatening, Hospitalization, Disabling, Congenital Anomaly, Other)
  Sender: FDA-Public Use
  Company Number: None

PATIENT
  Age: 34 Year
  Sex: Male
  Weight: 89.36 kg

DRUGS (1)
  1. TAMIFLU 75 MG ROCHE [Suspect]
     Dosage: 1 CAPSULE 2 TIMES/DAY PO
     Route: 048

REACTIONS (1)
  - Drug dispensing error [None]
